FAERS Safety Report 5055246-9 (Version None)
Quarter: 2006Q3

REPORT INFORMATION
  Report Type: 
  Country: None (occurrence: None)
  Receive Date: 20060714
  Receipt Date: 20060706
  Transmission Date: 20061208
  Serious: Yes (Hospitalization)
  Sender: FDA-Public Use
  Company Number: 2006064020

PATIENT
  Age: 61 Year
  Sex: Male
  Weight: 73.2 kg

DRUGS (5)
  1. NORVASC [Suspect]
     Indication: HYPERTENSION
     Dosage: 5  MG (5 MG, QD), ORAL
     Route: 048
     Dates: start: 20060411, end: 20060505
  2. LIPITOR [Suspect]
     Indication: HYPERLIPIDAEMIA
     Dosage: 10 MG (10 MG, QD), ORAL
     Route: 048
     Dates: start: 20060411, end: 20060413
  3. LOSARTAN POSTASSIUM [Suspect]
     Indication: HYPERTENSION
     Dosage: 50 MG (50 MG, QD), ORAL
     Route: 048
     Dates: start: 20060411, end: 20060505
  4. PRAVASTATIN [Suspect]
     Indication: DRUG USE FOR UNKNOWN INDICATION
     Dosage: ORAL
     Route: 048
     Dates: start: 20060221, end: 20060410
  5. NOVORAPID (INSULIN ASPART) [Concomitant]

REACTIONS (5)
  - BLOOD CREATINE PHOSPHOKINASE INCREASED [None]
  - INTERCAPILLARY GLOMERULOSCLEROSIS [None]
  - MUSCLE SPASMS [None]
  - NEPHROTIC SYNDROME [None]
  - OEDEMA PERIPHERAL [None]
